FAERS Safety Report 7614379-0 (Version None)
Quarter: 2011Q3

REPORT INFORMATION
  Report Type: 
  Country: None (occurrence: None)
  Receive Date: 20110708
  Receipt Date: 20110627
  Transmission Date: 20111222
  Serious: Yes (Life-Threatening, Hospitalization)
  Sender: FDA-Public Use
  Company Number: 200011583

PATIENT
  Sex: Male
  Weight: 68.0396 kg

DRUGS (1)
  1. WALGREENS MAGNESIUM CHERRY CITRATE 10OZ [Suspect]
     Indication: CONSTIPATION
     Dosage: 10 OZ. IN 24HR PERIOD/3-4 MONTHS

REACTIONS (6)
  - ABASIA [None]
  - PERONEAL NERVE PALSY [None]
  - DIARRHOEA [None]
  - RENAL FAILURE [None]
  - DEHYDRATION [None]
  - ILEUS [None]
